FAERS Safety Report 9638457 (Version 3)
Quarter: 2013Q4

REPORT INFORMATION
  Report Type: Spontaneous
  Country: US (occurrence: US)
  Receive Date: 20131022
  Receipt Date: 20131029
  Transmission Date: 20140711
  Serious: Yes (Hospitalization, Disabling, Other)
  Sender: FDA-Public Use
  Company Number: US-009507513-1204USA00481

PATIENT
  Sex: Female

DRUGS (3)
  1. FOSAMAX [Suspect]
     Indication: OSTEOPENIA
     Dosage: 70 MG, UNK
     Route: 048
     Dates: start: 20060417, end: 20080730
  2. ALENDRONATE SODIUM [Suspect]
     Indication: OSTEOPENIA
     Dosage: 70 MG, UNK
     Route: 048
     Dates: start: 20090112, end: 20091021
  3. CYANOCOBALAMIN [Concomitant]
     Indication: ROUTINE HEALTH MAINTENANCE
     Dosage: 1000 MG, UNK
     Dates: start: 1982

REACTIONS (16)
  - Femur fracture [Unknown]
  - Closed fracture manipulation [Unknown]
  - Bone disorder [Unknown]
  - Rotator cuff syndrome [Unknown]
  - Foot fracture [Unknown]
  - Foot fracture [Unknown]
  - Fall [Unknown]
  - Depression [Not Recovered/Not Resolved]
  - Anxiety [Not Recovered/Not Resolved]
  - Insomnia [Not Recovered/Not Resolved]
  - Vitamin D deficiency [Unknown]
  - Jaw disorder [Unknown]
  - Fibromyalgia [Unknown]
  - Periarthritis [Unknown]
  - Parkinson^s disease [Unknown]
  - Bursitis [Unknown]
